FAERS Safety Report 14608695 (Version 1)
Quarter: 2018Q1

REPORT INFORMATION
  Report Type: Spontaneous
  Country: US (occurrence: US)
  Receive Date: 20180306
  Receipt Date: 20180306
  Transmission Date: 20180509
  Serious: No
  Sender: FDA-Public Use
  Company Number: None

PATIENT
  Age: 68 Year
  Sex: Male
  Weight: 108 kg

DRUGS (1)
  1. TESTOSTERONE GEL 1%, 50MG PER PACKET (5GM OF GEL PER PACKET) [Suspect]
     Active Substance: TESTOSTERONE
     Indication: BLOOD TESTOSTERONE DECREASED
     Dosage: ?          QUANTITY:30 FOIL PACKETS;?
     Route: 061
     Dates: start: 20180123, end: 20180221

REACTIONS (2)
  - Blood testosterone decreased [None]
  - Product substitution issue [None]

NARRATIVE: CASE EVENT DATE: 20180220
